FAERS Safety Report 4850835-6 (Version None)
Quarter: 2005Q4

REPORT INFORMATION
  Report Type: 
  Country: None (occurrence: None)
  Receive Date: 20051208
  Receipt Date: 20051129
  Transmission Date: 20060501
  Serious: Yes (Other)
  Sender: FDA-Public Use
  Company Number: 2005161566

PATIENT
  Age: 62 Year
  Sex: Female

DRUGS (2)
  1. LIPITOR [Suspect]
     Indication: BLOOD CHOLESTEROL INCREASED
     Dosage: 10 MG (10 MG, 1 IN 1 D), ORAL
     Route: 048
     Dates: end: 20051101
  2. HYDROCHLOROTHIAZIDE [Concomitant]

REACTIONS (6)
  - COLITIS [None]
  - GASTRITIS [None]
  - GASTROENTERITIS [None]
  - LIVER FUNCTION TEST ABNORMAL [None]
  - OESOPHAGITIS [None]
  - RECTAL HAEMORRHAGE [None]
